FAERS Safety Report 7770937-4 (Version None)
Quarter: 2011Q3

REPORT INFORMATION
  Report Type: 
  Country: None (occurrence: None)
  Receive Date: 20110922
  Receipt Date: 20110425
  Transmission Date: 20111222
  Serious: No
  Sender: FDA-Public Use
  Company Number: US-ASTRAZENECA-2011SE23982

PATIENT
  Age: 32 Year
  Sex: Female
  Weight: 88.5 kg

DRUGS (4)
  1. ULTRAM [Concomitant]
  2. SEROQUEL [Suspect]
     Indication: BIPOLAR DISORDER
     Route: 048
     Dates: start: 20090101, end: 20110422
  3. SOMA [Concomitant]
  4. SEROQUEL [Suspect]
     Route: 048

REACTIONS (3)
  - DRUG DOSE OMISSION [None]
  - MOOD SWINGS [None]
  - RESTLESSNESS [None]
